FAERS Safety Report 6815762-3 (Version None)
Quarter: 2010Q3

REPORT INFORMATION
  Report Type: 
  Country: None (occurrence: None)
  Receive Date: 20100704
  Receipt Date: 20100622
  Transmission Date: 20110219
  Serious: Yes (Disabling, Other)
  Sender: FDA-Public Use
  Company Number: GB-BAUSCH-2010BL003490

PATIENT
  Age: 24 Year
  Sex: Male

DRUGS (5)
  1. CIPROFLOXACIN [Suspect]
     Indication: LYMPH NODE TUBERCULOSIS
     Dates: start: 20100101
  2. PREDNISOLONE [Suspect]
     Indication: LYMPH NODE TUBERCULOSIS
     Dates: start: 20100101, end: 20100101
  3. ETHAMBUTOL HYDROCHLORIDE [Suspect]
     Indication: LYMPH NODE TUBERCULOSIS
     Dates: start: 20100101, end: 20100101
  4. ISONIAZID [Suspect]
     Indication: LYMPH NODE TUBERCULOSIS
     Dates: start: 20100101
  5. RIFATER /UNK/ [Suspect]
     Indication: LYMPH NODE TUBERCULOSIS
     Dates: start: 20100101, end: 20100101

REACTIONS (2)
  - COLOUR BLINDNESS [None]
  - NEUROPATHY PERIPHERAL [None]
